FAERS Safety Report 16590948 (Version 1)
Quarter: 2019Q3

REPORT INFORMATION
  Report Type: Spontaneous
  Country: FR (occurrence: FR)
  Receive Date: 20190718
  Receipt Date: 20190718
  Transmission Date: 20191004
  Serious: Yes (Hospitalization)
  Sender: FDA-Public Use
  Company Number: FR-ASTRAZENECA-2019SE99291

PATIENT
  Age: 52 Year
  Sex: Female
  Weight: 80 kg

DRUGS (13)
  1. TRANXENE [Suspect]
     Active Substance: CLORAZEPATE DIPOTASSIUM
     Indication: SUICIDE ATTEMPT
     Dosage: 310.0MG ONCE/SINGLE ADMINISTRATION
     Route: 048
     Dates: start: 20180412, end: 20180412
  2. PERINDOPRIL [Suspect]
     Active Substance: PERINDOPRIL
     Indication: SUICIDE ATTEMPT
     Dosage: 48.0MG ONCE/SINGLE ADMINISTRATION
     Route: 048
     Dates: start: 20180412, end: 20180412
  3. ZOPICLONE [Suspect]
     Active Substance: ZOPICLONE
     Indication: SUICIDE ATTEMPT
     Dosage: 105.0MG ONCE/SINGLE ADMINISTRATION
     Route: 048
     Dates: start: 20180412, end: 20180412
  4. INEXIUM [Suspect]
     Active Substance: ESOMEPRAZOLE
     Indication: SUICIDE ATTEMPT
     Dosage: 48.0MG ONCE/SINGLE ADMINISTRATION
     Route: 048
     Dates: start: 20180412, end: 20180412
  5. CLOMIPRAMINE [Suspect]
     Active Substance: CLOMIPRAMINE
     Indication: SUICIDE ATTEMPT
     Dosage: 2.25G ONCE/SINGLE ADMINISTRATION
     Route: 048
     Dates: start: 20180412, end: 20180412
  6. ALPRAZOLAM. [Suspect]
     Active Substance: ALPRAZOLAM
     Indication: SUICIDE ATTEMPT
     Dosage: 15.0MG ONCE/SINGLE ADMINISTRATION
     Route: 048
     Dates: start: 20180412, end: 20180412
  7. FENOFIBRATE. [Suspect]
     Active Substance: FENOFIBRATE
     Indication: SUICIDE ATTEMPT
     Dosage: 10.0G ONCE/SINGLE ADMINISTRATION
     Route: 048
     Dates: start: 20180412, end: 20180412
  8. TRAMADOL. [Suspect]
     Active Substance: TRAMADOL
     Indication: SUICIDE ATTEMPT
     Dosage: 3.98G ONCE/SINGLE ADMINISTRATION
     Route: 048
     Dates: start: 20180412, end: 20180412
  9. PARACETAMOL [Suspect]
     Active Substance: ACETAMINOPHEN
     Indication: SUICIDE ATTEMPT
     Dosage: 34.45G ONCE/SINGLE ADMINISTRATION
     Route: 048
     Dates: start: 20180412, end: 20180412
  10. LUMIRELAX (METHOCARBAMOL\METHYL NICOTINATE) [Suspect]
     Active Substance: METHOCARBAMOL\METHYL NICOTINATE
     Indication: SUICIDE ATTEMPT
     Dosage: 10.0G ONCE/SINGLE ADMINISTRATION
     Route: 048
     Dates: start: 20180412, end: 20180412
  11. BROMAZEPAM [Suspect]
     Active Substance: BROMAZEPAM
     Indication: SUICIDE ATTEMPT
     Dosage: 180.0MG ONCE/SINGLE ADMINISTRATION
     Route: 048
     Dates: start: 20180412, end: 20180412
  12. IRBESARTAN. [Suspect]
     Active Substance: IRBESARTAN
     Indication: SUICIDE ATTEMPT
     Dosage: 1.5G ONCE/SINGLE ADMINISTRATION
     Route: 048
     Dates: start: 20180412, end: 20180412
  13. CELEBREX [Suspect]
     Active Substance: CELECOXIB
     Indication: SUICIDE ATTEMPT
     Dosage: 1.0G ONCE/SINGLE ADMINISTRATION
     Route: 048
     Dates: start: 20180412, end: 20180412

REACTIONS (8)
  - Shock [Recovered/Resolved]
  - Cyanosis [Recovered/Resolved]
  - Somnolence [Recovered/Resolved]
  - Toxicity to various agents [Recovered/Resolved]
  - Hypoxia [Recovered/Resolved]
  - Hypotension [Recovered/Resolved]
  - Coma [Recovered/Resolved]
  - Livedo reticularis [Recovered/Resolved]

NARRATIVE: CASE EVENT DATE: 20180412
